FAERS Safety Report 25256131 (Version 1)
Quarter: 2025Q2

REPORT INFORMATION
  Report Type: Spontaneous
  Country: GB (occurrence: GB)
  Receive Date: 20250430
  Receipt Date: 20250430
  Transmission Date: 20250717
  Serious: Yes (Disabling, Other)
  Sender: MYLAN
  Company Number: GB-MHRA-TPP11130075C2673483YC1745498477805

PATIENT
  Age: 88 Year
  Sex: Female
  Weight: 63 kg

DRUGS (36)
  1. ATORVASTATIN [Suspect]
     Active Substance: ATORVASTATIN
     Indication: Product used for unknown indication
  2. ATORVASTATIN [Suspect]
     Active Substance: ATORVASTATIN
     Route: 065
  3. ATORVASTATIN [Suspect]
     Active Substance: ATORVASTATIN
     Route: 065
  4. ATORVASTATIN [Suspect]
     Active Substance: ATORVASTATIN
  5. CARBOXYMETHYLCELLULOSE [Concomitant]
     Active Substance: CARBOXYMETHYLCELLULOSE
     Dates: start: 20250210, end: 20250211
  6. CARBOXYMETHYLCELLULOSE [Concomitant]
     Active Substance: CARBOXYMETHYLCELLULOSE
     Route: 065
     Dates: start: 20250210, end: 20250211
  7. CARBOXYMETHYLCELLULOSE [Concomitant]
     Active Substance: CARBOXYMETHYLCELLULOSE
     Route: 065
     Dates: start: 20250210, end: 20250211
  8. CARBOXYMETHYLCELLULOSE [Concomitant]
     Active Substance: CARBOXYMETHYLCELLULOSE
     Dates: start: 20250210, end: 20250211
  9. IBUPROFEN [Concomitant]
     Active Substance: IBUPROFEN
     Dosage: UNK, TID (APPLY UP TO THREE TIMES A DAY AS REQUIRED.)
     Dates: start: 20250325, end: 20250422
  10. IBUPROFEN [Concomitant]
     Active Substance: IBUPROFEN
     Dosage: UNK, TID (APPLY UP TO THREE TIMES A DAY AS REQUIRED.)
     Route: 065
     Dates: start: 20250325, end: 20250422
  11. IBUPROFEN [Concomitant]
     Active Substance: IBUPROFEN
     Dosage: UNK, TID (APPLY UP TO THREE TIMES A DAY AS REQUIRED.)
     Route: 065
     Dates: start: 20250325, end: 20250422
  12. IBUPROFEN [Concomitant]
     Active Substance: IBUPROFEN
     Dosage: UNK, TID (APPLY UP TO THREE TIMES A DAY AS REQUIRED.)
     Dates: start: 20250325, end: 20250422
  13. NITROFURANTOIN [Concomitant]
     Active Substance: NITROFURANTOIN
     Dosage: 1 DOSAGE FORM, BID ((FOR 3 DAY COURSE). TAKE ONE CAPSULE TWICE A DA.)
     Dates: start: 20250414, end: 20250417
  14. NITROFURANTOIN [Concomitant]
     Active Substance: NITROFURANTOIN
     Dosage: 1 DOSAGE FORM, BID ((FOR 3 DAY COURSE). TAKE ONE CAPSULE TWICE A DA.)
     Route: 065
     Dates: start: 20250414, end: 20250417
  15. NITROFURANTOIN [Concomitant]
     Active Substance: NITROFURANTOIN
     Dosage: 1 DOSAGE FORM, BID ((FOR 3 DAY COURSE). TAKE ONE CAPSULE TWICE A DA.)
     Route: 065
     Dates: start: 20250414, end: 20250417
  16. NITROFURANTOIN [Concomitant]
     Active Substance: NITROFURANTOIN
     Dosage: 1 DOSAGE FORM, BID ((FOR 3 DAY COURSE). TAKE ONE CAPSULE TWICE A DA.)
     Dates: start: 20250414, end: 20250417
  17. Hylo night [Concomitant]
     Dosage: UNK, PM (APPLY TO BOTH EYES AT NIGHT)
     Dates: start: 20231113
  18. Hylo night [Concomitant]
     Dosage: UNK, PM (APPLY TO BOTH EYES AT NIGHT)
     Route: 047
     Dates: start: 20231113
  19. Hylo night [Concomitant]
     Dosage: UNK, PM (APPLY TO BOTH EYES AT NIGHT)
     Route: 047
     Dates: start: 20231113
  20. Hylo night [Concomitant]
     Dosage: UNK, PM (APPLY TO BOTH EYES AT NIGHT)
     Dates: start: 20231113
  21. RISEDRONATE SODIUM [Concomitant]
     Active Substance: RISEDRONATE SODIUM
     Dosage: 1 DOSAGE FORM, QW (TAKE ONE WEEKLY ON THE SAME DAY EACH WEEK)
     Dates: start: 20240221, end: 20250210
  22. RISEDRONATE SODIUM [Concomitant]
     Active Substance: RISEDRONATE SODIUM
     Dosage: 1 DOSAGE FORM, QW (TAKE ONE WEEKLY ON THE SAME DAY EACH WEEK)
     Route: 065
     Dates: start: 20240221, end: 20250210
  23. RISEDRONATE SODIUM [Concomitant]
     Active Substance: RISEDRONATE SODIUM
     Dosage: 1 DOSAGE FORM, QW (TAKE ONE WEEKLY ON THE SAME DAY EACH WEEK)
     Route: 065
     Dates: start: 20240221, end: 20250210
  24. RISEDRONATE SODIUM [Concomitant]
     Active Substance: RISEDRONATE SODIUM
     Dosage: 1 DOSAGE FORM, QW (TAKE ONE WEEKLY ON THE SAME DAY EACH WEEK)
     Dates: start: 20240221, end: 20250210
  25. Calci d [Concomitant]
     Dosage: 1 DOSAGE FORM, QD (TAKE ONE DAILY)
     Dates: start: 20241220
  26. Calci d [Concomitant]
     Dosage: 1 DOSAGE FORM, QD (TAKE ONE DAILY)
     Route: 065
     Dates: start: 20241220
  27. Calci d [Concomitant]
     Dosage: 1 DOSAGE FORM, QD (TAKE ONE DAILY)
     Route: 065
     Dates: start: 20241220
  28. Calci d [Concomitant]
     Dosage: 1 DOSAGE FORM, QD (TAKE ONE DAILY)
     Dates: start: 20241220
  29. LANSOPRAZOLE [Concomitant]
     Active Substance: LANSOPRAZOLE
     Dosage: 1 DOSAGE FORM, QD (TAKE ONE ONCE DAILY)
     Dates: start: 20241220
  30. LANSOPRAZOLE [Concomitant]
     Active Substance: LANSOPRAZOLE
     Dosage: 1 DOSAGE FORM, QD (TAKE ONE ONCE DAILY)
     Route: 065
     Dates: start: 20241220
  31. LANSOPRAZOLE [Concomitant]
     Active Substance: LANSOPRAZOLE
     Dosage: 1 DOSAGE FORM, QD (TAKE ONE ONCE DAILY)
     Route: 065
     Dates: start: 20241220
  32. LANSOPRAZOLE [Concomitant]
     Active Substance: LANSOPRAZOLE
     Dosage: 1 DOSAGE FORM, QD (TAKE ONE ONCE DAILY)
     Dates: start: 20241220
  33. ACETAMINOPHEN [Concomitant]
     Active Substance: ACETAMINOPHEN
     Dosage: UNK, QID (TAKE ONE OR TWO TABLETS FOUR TIMES A DAY WHEN R..)
     Dates: start: 20241220
  34. ACETAMINOPHEN [Concomitant]
     Active Substance: ACETAMINOPHEN
     Dosage: UNK, QID (TAKE ONE OR TWO TABLETS FOUR TIMES A DAY WHEN R..)
     Route: 065
     Dates: start: 20241220
  35. ACETAMINOPHEN [Concomitant]
     Active Substance: ACETAMINOPHEN
     Dosage: UNK, QID (TAKE ONE OR TWO TABLETS FOUR TIMES A DAY WHEN R..)
     Route: 065
     Dates: start: 20241220
  36. ACETAMINOPHEN [Concomitant]
     Active Substance: ACETAMINOPHEN
     Dosage: UNK, QID (TAKE ONE OR TWO TABLETS FOUR TIMES A DAY WHEN R..)
     Dates: start: 20241220

REACTIONS (3)
  - Abdominal pain [Recovered/Resolved]
  - Muscle spasms [Unknown]
  - Abdominal discomfort [Unknown]
